FAERS Safety Report 7129125-7 (Version None)
Quarter: 2010Q4

REPORT INFORMATION
  Report Type: 
  Country: None (occurrence: None)
  Receive Date: 20101130
  Receipt Date: 20101124
  Transmission Date: 20110411
  Serious: Yes (Hospitalization)
  Sender: FDA-Public Use
  Company Number: AU-PFIZER INC-2010156266

PATIENT
  Age: 45 Year
  Sex: Female
  Weight: 60 kg

DRUGS (1)
  1. CHAMPIX [Suspect]
     Indication: TOBACCO USER
     Dosage: 1 MG, UNK
     Route: 048
     Dates: start: 20100515

REACTIONS (4)
  - BLISTER [None]
  - DIARRHOEA [None]
  - VOMITING [None]
  - VOMITING IN PREGNANCY [None]
